FAERS Safety Report 6329596-X (Version None)
Quarter: 2009Q3

REPORT INFORMATION
  Report Type: 
  Country: None (occurrence: None)
  Receive Date: 20090826
  Receipt Date: 20090819
  Transmission Date: 20100115
  Serious: Yes (Congenital Anomaly)
  Sender: FDA-Public Use
  Company Number: GB-MERCK-0908GBR00058

PATIENT
  Sex: Female

DRUGS (9)
  1. SINGULAIR [Suspect]
     Indication: ASTHMA
     Route: 064
     Dates: start: 20070420, end: 20080418
  2. AMOXICILLIN [Concomitant]
     Route: 064
     Dates: start: 20080901
  3. AMOXICILLIN [Concomitant]
     Route: 064
     Dates: start: 20080528
  4. FERROUS FUMARATE [Concomitant]
     Indication: PREGNANCY
     Route: 064
  5. FOLIC ACID [Concomitant]
     Indication: PREGNANCY
     Route: 064
  6. MEBEVERINE HYDROCHLORIDE [Concomitant]
     Indication: IRRITABLE BOWEL SYNDROME
     Route: 064
     Dates: start: 20080121, end: 20080201
  7. METRONIDAZOLE [Concomitant]
     Indication: VAGINITIS BACTERIAL
     Route: 064
     Dates: start: 20080312, end: 20080312
  8. ALBUTEROL [Concomitant]
     Indication: ASTHMA
     Route: 064
     Dates: start: 20070420
  9. BUDESONIDE AND FORMOTEROL FUMARATE [Concomitant]
     Indication: ASTHMA
     Route: 064
     Dates: start: 20070420

REACTIONS (3)
  - DEVELOPMENTAL DELAY [None]
  - HYPOKINESIA [None]
  - HYPOTONIA [None]
